FAERS Safety Report 6254992-9 (Version None)
Quarter: 2009Q3

REPORT INFORMATION
  Report Type: 
  Country: None (occurrence: None)
  Receive Date: 20090702
  Receipt Date: 20090625
  Transmission Date: 20100115
  Serious: Yes (Hospitalization)
  Sender: FDA-Public Use
  Company Number: DE-MERCK-0906DEU00008

PATIENT
  Age: 43 Year
  Sex: Female
  Weight: 94 kg

DRUGS (3)
  1. MEVACOR [Suspect]
     Indication: HYPERCHOLESTEROLAEMIA
     Route: 048
     Dates: start: 19900730, end: 19901017
  2. OFLOXACIN HYDROCHLORIDE [Concomitant]
     Indication: OTITIS MEDIA
     Route: 065
  3. ZOCOR [Suspect]
     Indication: HYPERCHOLESTEROLAEMIA
     Route: 048
     Dates: start: 19901201, end: 19910105

REACTIONS (13)
  - AUTOIMMUNE THYROIDITIS [None]
  - BALANCE DISORDER [None]
  - DERMATITIS PSORIASIFORM [None]
  - DYSGEUSIA [None]
  - ENDOCRINE DISORDER [None]
  - FALL [None]
  - HYPERSENSITIVITY [None]
  - MYOPATHY [None]
  - OEDEMA [None]
  - PAROSMIA [None]
  - SKIN HAEMORRHAGE [None]
  - VASCULITIS [None]
  - VISUAL IMPAIRMENT [None]
